FAERS Safety Report 9915112 (Version 2)
Quarter: 2015Q2

REPORT INFORMATION
  Report Type: Report from Study
  Country: BE (occurrence: BE)
  Receive Date: 20140220
  Receipt Date: 20150416
  Transmission Date: 20150821
  Serious: Yes (Hospitalization)
  Sender: FDA-Public Use
  Company Number: BE-ASTRAZENECA-2014SE11099

PATIENT
  Age: 54 Year
  Sex: Female

DRUGS (5)
  1. INSULIN [Concomitant]
     Active Substance: INSULIN NOS
     Dosage: 15U/10/U/15/U (3 T.I.D)
  2. LOPERAMIDE [Concomitant]
     Active Substance: LOPERAMIDE
     Dosage: AS REQUIRED
  3. ASPIRIN. [Suspect]
     Active Substance: ASPIRIN
     Indication: ACUTE CORONARY SYNDROME
     Dosage: 80MG TOTAL DAILY DOSE (NON AZ PRODUCT)
     Route: 048
     Dates: end: 20130814
  4. TICAGRELOR [Suspect]
     Active Substance: TICAGRELOR
     Indication: ACUTE CORONARY SYNDROME
     Route: 048
     Dates: start: 20130715
  5. METFORMIN [Concomitant]
     Active Substance: METFORMIN HYDROCHLORIDE
     Dosage: 500 (3 T.I.D)

REACTIONS (3)
  - Diabetes mellitus [Recovered/Resolved]
  - Non-cardiac chest pain [Recovered/Resolved]
  - Drug ineffective [Recovered/Resolved]

NARRATIVE: CASE EVENT DATE: 20130716
